FAERS Safety Report 5509738-6 (Version None)
Quarter: 2007Q4

REPORT INFORMATION
  Report Type: 
  Country: None (occurrence: None)
  Receive Date: 20071106
  Receipt Date: 20071027
  Transmission Date: 20080405
  Serious: No
  Sender: FDA-Public Use
  Company Number: 2007-166574-NL

PATIENT
  Sex: Male

DRUGS (3)
  1. ROCURONIUM BROMIDE [Suspect]
     Indication: HYPOTONIA
     Dosage: 0.9 MG/KG ONCE/10 MG ONCE; {1 MONTH; INTRAVENOUS (NOS)
     Route: 042
     Dates: start: 20071001, end: 20071001
  2. ROCURONIUM BROMIDE [Suspect]
     Indication: HYPOTONIA
     Dosage: 0.9 MG/KG ONCE/10 MG ONCE; {1 MONTH; INTRAVENOUS (NOS)
     Route: 042
     Dates: start: 20071001, end: 20071001
  3. ROCURONIUM BROMIDE [Suspect]
     Indication: HYPOTONIA
     Dosage: 0.9 MG/KG ONCE/10 MG ONCE; {1 MONTH; INTRAVENOUS (NOS)
     Route: 042
     Dates: start: 20071001, end: 20071001

REACTIONS (2)
  - DRUG EFFECT DECREASED [None]
  - DYSPNOEA [None]
